FAERS Safety Report 4957670-9 (Version None)
Quarter: 2006Q1

REPORT INFORMATION
  Report Type: 
  Country: None (occurrence: None)
  Receive Date: 20060324
  Receipt Date: 20060315
  Transmission Date: 20060701
  Serious: No
  Sender: FDA-Public Use
  Company Number: US200603004149

PATIENT
  Age: 33 Year
  Sex: Female

DRUGS (4)
  1. ZYPREXA [Suspect]
     Indication: SCHIZOPHRENIA
     Dosage: 5 MG, EACH EVENING, ORAL; 2.5 MG, DAILY (1/D),ORAL
     Route: 048
     Dates: start: 20040101
  2. PRENATAL VITAMINS (ASCORBIC ACID, BIOTIN, MINERAL NOS, NICOTINIC ACID, [Concomitant]
  3. FOLIC ACID [Concomitant]
  4. CALCIUM (CALCIUM) [Concomitant]

REACTIONS (3)
  - DRUG EXPOSURE DURING PREGNANCY [None]
  - HAEMOGLOBIN DECREASED [None]
  - PREGNANCY [None]
